FAERS Safety Report 4706984-6 (Version None)
Quarter: 2005Q3

REPORT INFORMATION
  Report Type: 
  Country: None (occurrence: None)
  Receive Date: 20050701
  Receipt Date: 20050628
  Transmission Date: 20060218
  Serious: No
  Sender: FDA-Public Use
  Company Number: 2005BH000438

PATIENT
  Age: 24 Hour
  Sex: Female
  Weight: 1.75 kg

DRUGS (1)
  1. DEXTROSE 10% IN PLASTIC CONTAINER [Suspect]
     Dosage: 12.5 PCT; IV
     Route: 042
     Dates: start: 20050626, end: 20050626

REACTIONS (1)
  - BLOOD GLUCOSE DECREASED [None]
